FAERS Safety Report 11501843 (Version 2)
Quarter: 2016Q1

REPORT INFORMATION
  Report Type: Spontaneous
  Country: US (occurrence: US)
  Receive Date: 20150914
  Receipt Date: 20160105
  Transmission Date: 20160525
  Serious: No
  Sender: FDA-Public Use
  Company Number: US-CELGENEUS-USA-2015080214

PATIENT
  Age: 45 Year
  Sex: Female

DRUGS (4)
  1. PHENTERMINE. [Concomitant]
     Active Substance: PHENTERMINE
     Indication: PRODUCT USED FOR UNKNOWN INDICATION
     Route: 065
  2. OTEZLA [Suspect]
     Active Substance: APREMILAST
     Indication: PSORIASIS
     Dosage: 30 MILLIGRAM
     Route: 048
     Dates: start: 20150423
  3. ZYRTEC [Concomitant]
     Active Substance: CETIRIZINE HYDROCHLORIDE
     Indication: PRODUCT USED FOR UNKNOWN INDICATION
     Route: 065
  4. ATORVASTATIN [Concomitant]
     Active Substance: ATORVASTATIN
     Indication: PRODUCT USED FOR UNKNOWN INDICATION
     Route: 065

REACTIONS (4)
  - Diarrhoea [Not Recovered/Not Resolved]
  - Psoriasis [Not Recovered/Not Resolved]
  - Headache [Not Recovered/Not Resolved]
  - Drug ineffective [Unknown]

NARRATIVE: CASE EVENT DATE: 20150423
